FAERS Safety Report 10144311 (Version 1)
Quarter: 2014Q2

REPORT INFORMATION
  Report Type: Report from Study
  Country: US (occurrence: US)
  Receive Date: 20140430
  Receipt Date: 20140430
  Transmission Date: 20141212
  Serious: Yes (Death, Hospitalization, Other)
  Sender: FDA-Public Use
  Company Number: US-CELGENEUS-163-50794-14045058

PATIENT
  Age: 78 Year
  Sex: Male
  Weight: 81.3 kg

DRUGS (11)
  1. VIDAZA [Suspect]
     Indication: MYELODYSPLASTIC SYNDROME
     Dosage: 55 MILLIGRAM/SQ. METER
     Route: 058
     Dates: start: 20070227
  2. VIDAZA [Suspect]
     Dosage: 55 MILLIGRAM/SQ. METER
     Route: 058
     Dates: end: 20080212
  3. VORINOSTAT [Suspect]
     Indication: MYELODYSPLASTIC SYNDROME
     Route: 048
     Dates: start: 20070227
  4. VORINOSTAT [Suspect]
     Route: 048
     Dates: start: 20080208, end: 20080212
  5. CEFTAZIDIME [Concomitant]
     Indication: PYREXIA
     Route: 065
     Dates: start: 200802
  6. PRBC [Concomitant]
     Indication: PRODUCT USED FOR UNKNOWN INDICATION
     Dosage: 2 UNITS
     Route: 041
     Dates: start: 20080221
  7. PLATELETS [Concomitant]
     Indication: PRODUCT USED FOR UNKNOWN INDICATION
     Dosage: 1 UNIT
     Route: 041
     Dates: start: 20080221
  8. PLATELETS [Concomitant]
     Dosage: 1 UNIT
     Route: 041
     Dates: start: 20080225
  9. OXYGEN [Concomitant]
     Indication: PRODUCT USED FOR UNKNOWN INDICATION
     Route: 065
     Dates: start: 200803
  10. MORPHINE [Concomitant]
     Indication: TACHYPNOEA
     Route: 065
     Dates: start: 200803
  11. MORPHINE [Concomitant]
     Indication: DISCOMFORT

REACTIONS (3)
  - Pneumonia [Fatal]
  - Myocardial infarction [Unknown]
  - Cough [Unknown]
